FAERS Safety Report 14160398 (Version 5)
Quarter: 2018Q1

REPORT INFORMATION
  Report Type: Report from Study
  Country: None (occurrence: AR)
  Receive Date: 20171104
  Receipt Date: 20180223
  Transmission Date: 20180508
  Serious: Yes (Hospitalization, Other)
  Sender: FDA-Public Use
  Company Number: AR-ABBVIE-17K-007-2152633-00

PATIENT
  Age: 58 Year
  Sex: Female

DRUGS (1)
  1. HUMIRA [Suspect]
     Active Substance: ADALIMUMAB
     Indication: PSORIATIC ARTHROPATHY
     Route: 058
     Dates: start: 20151001, end: 201709

REACTIONS (3)
  - Breast neoplasm [Recovering/Resolving]
  - Neoplasm skin [Unknown]
  - Malaise [Unknown]

NARRATIVE: CASE EVENT DATE: 20180221
